FAERS Safety Report 7771401-9 (Version None)
Quarter: 2011Q3

REPORT INFORMATION
  Report Type: 
  Country: None (occurrence: None)
  Receive Date: 20110922
  Receipt Date: 20100827
  Transmission Date: 20111222
  Serious: Yes (Other)
  Sender: FDA-Public Use
  Company Number: US-ASTRAZENECA-2008UW01174

PATIENT
  Age: 39 Year
  Sex: Female
  Weight: 54.9 kg

DRUGS (14)
  1. DEPAKOTE [Concomitant]
  2. AMBIEN [Concomitant]
  3. PHENERGAN HCL [Concomitant]
  4. SEROQUEL [Suspect]
     Indication: DEPRESSION
     Route: 048
     Dates: start: 20040301, end: 20050601
  5. SEROQUEL [Suspect]
     Indication: BIPOLAR DISORDER
     Route: 048
     Dates: start: 20040301, end: 20050601
  6. WELLBUTRIN XL [Concomitant]
  7. TRIAZOLAM [Concomitant]
  8. LEXAPRO [Concomitant]
  9. THORAZINE [Concomitant]
     Dates: start: 19900101
  10. CYCLOBENZAPRINE HCL [Concomitant]
  11. SEROQUEL [Suspect]
     Indication: ANXIETY
     Route: 048
     Dates: start: 20040301, end: 20050601
  12. ALPRAZOLAM [Concomitant]
  13. DESIPRAMINE HYDROCHLORIDE [Concomitant]
  14. CITALOPRAM HYDROBROMIDE [Concomitant]

REACTIONS (4)
  - DIABETIC COMA [None]
  - DIABETIC COMPLICATION [None]
  - WRIST FRACTURE [None]
  - TYPE 2 DIABETES MELLITUS [None]
